FAERS Safety Report 15832613 (Version 3)
Quarter: 2019Q2

REPORT INFORMATION
  Report Type: Spontaneous
  Country: US (occurrence: US)
  Receive Date: 20190116
  Receipt Date: 20190523
  Transmission Date: 20190711
  Serious: Yes (Hospitalization)
  Sender: FDA-Public Use
  Company Number: US-ACTELION-A-NJ2019-184537

PATIENT
  Age: 4 Year
  Sex: Female

DRUGS (18)
  1. FLONASE [Concomitant]
     Active Substance: FLUTICASONE PROPIONATE
  2. SENOKOT [Concomitant]
     Active Substance: SENNOSIDES
  3. SINGULAIR [Concomitant]
     Active Substance: MONTELUKAST SODIUM
  4. DIURIL [Concomitant]
     Active Substance: CHLOROTHIAZIDE
  5. ALBUTEROL SULFATE. [Concomitant]
     Active Substance: ALBUTEROL SULFATE
  6. ARNUITY ELLIPTA [Concomitant]
     Active Substance: FLUTICASONE FUROATE
  7. PROTONIX [Concomitant]
     Active Substance: PANTOPRAZOLE SODIUM
  8. ZYRTEC [Concomitant]
     Active Substance: CETIRIZINE HYDROCHLORIDE
  9. TRACLEER [Suspect]
     Active Substance: BOSENTAN
     Indication: PULMONARY HYPERTENSION
     Dosage: 32 MG, UNK
     Route: 048
     Dates: start: 20181017, end: 201902
  10. FUROSEMIDE. [Concomitant]
     Active Substance: FUROSEMIDE
  11. LOVENOX [Concomitant]
     Active Substance: ENOXAPARIN SODIUM
  12. FLINTSTONES MULTIVITAMINS WITH IRON [Concomitant]
  13. VASOTEC [Concomitant]
     Active Substance: ENALAPRIL MALEATE
  14. AMOXICILLIN. [Concomitant]
     Active Substance: AMOXICILLIN
  15. ASPIRIN 81 [Concomitant]
     Active Substance: ASPIRIN
  16. MOMETASONE FUROATE. [Concomitant]
     Active Substance: MOMETASONE FUROATE
  17. SILDENAFIL CITRATE. [Concomitant]
     Active Substance: SILDENAFIL CITRATE
  18. SODIUM CHLORIDE. [Concomitant]
     Active Substance: SODIUM CHLORIDE

REACTIONS (3)
  - Drug ineffective [Unknown]
  - Therapy cessation [Unknown]
  - Gastritis [Recovered/Resolved]

NARRATIVE: CASE EVENT DATE: 201902
